FAERS Safety Report 16385323 (Version 2)
Quarter: 2020Q4

REPORT INFORMATION
  Report Type: Spontaneous
  Country: AU (occurrence: AU)
  Receive Date: 20190603
  Receipt Date: 20201126
  Transmission Date: 20210113
  Serious: Yes (Hospitalization, Other)
  Sender: FDA-Public Use
  Company Number: AU-JNJFOC-20190600168

PATIENT
  Age: 78 Year
  Sex: Male

DRUGS (1)
  1. RIVAROXABAN [Suspect]
     Active Substance: RIVAROXABAN
     Indication: NEPHROSTOMY
     Dosage: UNK
     Route: 048

REACTIONS (5)
  - Off label use [Unknown]
  - Splenic rupture [Unknown]
  - Splenic haematoma [Unknown]
  - Product use in unapproved indication [Unknown]
  - Subcapsular renal haematoma [Unknown]
